FAERS Safety Report 8396725-6 (Version None)
Quarter: 2012Q1

REPORT INFORMATION
  Report Type: 
  Country: None (occurrence: None)
  Receive Date: 20120323
  Receipt Date: 20110711
  Transmission Date: 20120608
  Serious: Yes (Other)
  Sender: FDA-Public Use
  Company Number: 163-21880-11071305

PATIENT
  Age: 41 Year
  Sex: Female
  Weight: 87.5896 kg

DRUGS (11)
  1. VITAMIN D [Concomitant]
  2. VICODIN [Concomitant]
  3. ZOMETA [Concomitant]
  4. LEVAQUIN [Concomitant]
  5. BORTEZOMIN (BORTEZOMIB) [Concomitant]
  6. COMPAZINE [Concomitant]
  7. CALCIUM CARBONATE [Concomitant]
  8. ACYCLOVIR [Concomitant]
  9. REVLIMID [Suspect]
     Indication: MULTIPLE MYELOMA
     Dosage: 25 MG, 1 IN 1 D, PO
     Route: 048
     Dates: start: 20110330
  10. ASPIRIN [Concomitant]
  11. DEXAMETHASONE [Concomitant]

REACTIONS (1)
  - PLASMACYTOMA [None]
